FAERS Safety Report 8823726 (Version 1)
Quarter: 2012Q4

REPORT INFORMATION
  Report Type: 
  Country: GB (occurrence: GB)
  Receive Date: 20121003
  Receipt Date: 20121003
  Transmission Date: 20130627
  Serious: Yes (Life-Threatening, Hospitalization, Other)
  Sender: FDA-Public Use
  Company Number: PHHY2010GB094857

PATIENT
  Age: 50 Year
  Sex: Female

DRUGS (2)
  1. PHENYLBUTAZONE [Suspect]
     Dosage: UNK UKN, UNK
     Route: 042
  2. ACEPROMAZINE [Suspect]

REACTIONS (8)
  - Suicide attempt [Unknown]
  - Loss of consciousness [Unknown]
  - Dermatitis bullous [Recovered/Resolved]
  - Blister [Recovered/Resolved]
  - Injection site inflammation [Unknown]
  - Aspartate aminotransferase increased [Unknown]
  - C-reactive protein increased [Unknown]
  - Incorrect route of drug administration [Unknown]
